FAERS Safety Report 6306411-1 (Version None)
Quarter: 2009Q3

REPORT INFORMATION
  Report Type: 
  Country: None (occurrence: None)
  Receive Date: 20090810
  Receipt Date: 20090729
  Transmission Date: 20100115
  Serious: Yes (Hospitalization)
  Sender: FDA-Public Use
  Company Number: 2009AL001430

PATIENT
  Age: 27 Year
  Sex: Male
  Weight: 78.0187 kg

DRUGS (8)
  1. DIGOXIN [Suspect]
     Indication: ARRHYTHMIA
     Dosage: 0.25MG, DAILY, PO
     Route: 048
     Dates: end: 20080127
  2. SOTANOL [Concomitant]
  3. ATENOLOL [Concomitant]
  4. BENADRYL [Concomitant]
  5. ZOLOFT [Concomitant]
  6. TENORMIN [Concomitant]
  7. TYLENOL (CAPLET) [Concomitant]
  8. ATROPINE [Concomitant]

REACTIONS (24)
  - ANHEDONIA [None]
  - ANXIETY [None]
  - ARRHYTHMIA [None]
  - ATRIAL FIBRILLATION [None]
  - CHEST PAIN [None]
  - DEPRESSION [None]
  - DIZZINESS [None]
  - DYSPNOEA [None]
  - ECONOMIC PROBLEM [None]
  - EMOTIONAL DISORDER [None]
  - FAMILY STRESS [None]
  - FATIGUE [None]
  - FEAR [None]
  - HEADACHE [None]
  - HYPOAESTHESIA FACIAL [None]
  - MULTIPLE INJURIES [None]
  - NAUSEA [None]
  - PAIN [None]
  - PALPITATIONS [None]
  - PANIC ATTACK [None]
  - QUALITY OF LIFE DECREASED [None]
  - SINUS BRADYCARDIA [None]
  - SOCIAL PROBLEM [None]
  - STRESS [None]
